FAERS Safety Report 8549733-6 (Version None)
Quarter: 2012Q3

REPORT INFORMATION
  Report Type: 
  Country: None (occurrence: None)
  Receive Date: 20120730
  Receipt Date: 20120718
  Transmission Date: 20120928
  Serious: Yes (Hospitalization, Disabling, Other)
  Sender: FDA-Public Use
  Company Number: US-009507513-1103USA00996

PATIENT

DRUGS (10)
  1. FOSAMAX [Suspect]
     Indication: OSTEOPOROSIS PROPHYLAXIS
     Dosage: 70 MG, UNK
     Route: 048
     Dates: start: 20001001, end: 20080201
  2. CALCIUM (UNSPECIFIED) (+) VITAMIN D (UNSPECIFIED) [Concomitant]
     Route: 048
     Dates: start: 19900101
  3. FOSAMAX [Suspect]
     Indication: OSTEOPOROSIS
     Dosage: 10 MG, UNK
     Route: 048
     Dates: start: 19980701, end: 20001001
  4. FOSAMAX [Suspect]
     Dosage: 70 MG, UNK
     Route: 048
     Dates: start: 20080201, end: 20100601
  5. ALENDRONATE SODIUM [Suspect]
     Dosage: 70 MG, UNK
     Dates: start: 20060202
  6. HORMONES (UNSPECIFIED) [Concomitant]
     Route: 048
     Dates: start: 19970101, end: 20020101
  7. FOSAMAX [Suspect]
  8. OMEGA-3 MARINE TRIGLYCERIDES [Concomitant]
     Route: 048
     Dates: start: 19900101
  9. FOSAMAX [Suspect]
     Dosage: UNK
     Route: 048
  10. MK-9278 [Concomitant]
     Route: 048
     Dates: start: 19900101

REACTIONS (8)
  - BLOOD CHOLESTEROL INCREASED [None]
  - STRESS FRACTURE [None]
  - IMPAIRED HEALING [None]
  - DIABETES MELLITUS [None]
  - ADVERSE EVENT [None]
  - FEMUR FRACTURE [None]
  - LOW TURNOVER OSTEOPATHY [None]
  - OSTEOPOROSIS [None]
